FAERS Safety Report 8254408-7 (Version None)
Quarter: 2012Q2

REPORT INFORMATION
  Report Type: 
  Country: None (occurrence: None)
  Receive Date: 20120402
  Receipt Date: 20120323
  Transmission Date: 20120825
  Serious: Yes (Death, Hospitalization)
  Sender: FDA-Public Use
  Company Number: JP-AMGEN-JPNCT2011023771

PATIENT
  Age: 80 Year
  Sex: Male
  Weight: 42 kg

DRUGS (16)
  1. HIRUDOID [Concomitant]
     Dosage: UNK
     Route: 062
  2. PROMACTA [Concomitant]
     Dosage: 150 MG, QD
     Route: 048
  3. LEUCOVORIN CALCIUM [Suspect]
     Indication: COLORECTAL CANCER
     Dosage: 250 MG, Q2WK
     Route: 041
     Dates: start: 20100618, end: 20100910
  4. MOTILIUM [Concomitant]
     Dosage: 30 MG, QD
     Route: 048
  5. ALLEGRA [Concomitant]
     Dosage: 120 MG, QD
     Route: 048
  6. FLUOROURACIL [Suspect]
     Indication: COLORECTAL CANCER
     Dosage: 2100 MG, Q2WK
     Route: 041
     Dates: start: 20100618, end: 20100910
  7. KINDAVATE [Concomitant]
     Dosage: UNK
     Route: 062
  8. PREDNISOLONE [Concomitant]
     Dosage: 5 MG, QD
     Route: 048
  9. DECADRON [Concomitant]
     Dosage: 4 MG, QD
     Route: 048
  10. ASPIRIN [Concomitant]
     Dosage: 100 MG, QD
     Route: 048
  11. PANITUMUMAB [Suspect]
     Indication: COLORECTAL CANCER
     Dosage: 6 MG/KG, Q2WK
     Route: 041
     Dates: start: 20100618, end: 20110107
  12. IRINOTECAN HCL [Suspect]
     Indication: COLORECTAL CANCER
     Dosage: 150 MG, Q2WK
     Route: 041
     Dates: start: 20100618, end: 20100910
  13. MINOMYCIN [Concomitant]
     Dosage: 50 MG, QD
     Route: 048
  14. NORVASC [Concomitant]
     Dosage: 5 MG, QD
     Route: 048
  15. ACECOL [Concomitant]
     Dosage: 2 MG, QD
     Route: 048
  16. SPIRIVA [Concomitant]
     Dosage: UNK
     Route: 055

REACTIONS (8)
  - COLORECTAL CANCER [None]
  - DIARRHOEA [None]
  - DEHYDRATION [None]
  - DERMATITIS ACNEIFORM [None]
  - ENTEROCOLITIS [None]
  - MALAISE [None]
  - HYPOMAGNESAEMIA [None]
  - NEUTROPHIL COUNT DECREASED [None]
